FAERS Safety Report 9580348 (Version 1)
Quarter: 2013Q3

REPORT INFORMATION
  Report Type: Spontaneous
  Country: US (occurrence: None)
  Receive Date: 20130916
  Receipt Date: 20130916
  Transmission Date: 20140515
  Serious: Yes (Hospitalization)
  Sender: FDA-Public Use
  Company Number: JPI-P-024904

PATIENT
  Age: 58 Year
  Sex: Female

DRUGS (1)
  1. XYREM (500 MILLIGRAM/MILLILITERS, SOLUTION) (SODIUM OXYBATE) [Suspect]
     Indication: SLEEP DISORDER
     Dosage: 4.5 GM  (2.25 GM,  2 IN 1 D), ORAL
     Route: 048
     Dates: start: 20120822

REACTIONS (2)
  - Loss of consciousness [None]
  - Dyspnoea [None]
